FAERS Safety Report 14180409 (Version 1)
Quarter: 2017Q4

REPORT INFORMATION
  Report Type: Spontaneous
  Country: GB (occurrence: GB)
  Receive Date: 20171111
  Receipt Date: 20171111
  Transmission Date: 20180321
  Serious: Yes (Death, Hospitalization, Other)
  Sender: FDA-Public Use
  Company Number: GB-TEVA-822083ACC

PATIENT
  Age: 81 Year
  Sex: Male
  Weight: 59 kg

DRUGS (18)
  1. TRAZODONE [Suspect]
     Active Substance: TRAZODONE HYDROCHLORIDE
     Indication: DELIRIUM
     Route: 048
     Dates: start: 201705
  2. DOCUSATE [Concomitant]
     Active Substance: DOCUSATE
  3. MENTHOL. [Concomitant]
     Active Substance: MENTHOL
  4. TRAZODONE [Suspect]
     Active Substance: TRAZODONE HYDROCHLORIDE
     Indication: DELIRIUM
     Route: 048
  5. SIMVASTATIN. [Concomitant]
     Active Substance: SIMVASTATIN
  6. FERROUS FUMARATE [Concomitant]
     Active Substance: FERROUS FUMARATE
  7. GABAPENTIN. [Concomitant]
     Active Substance: GABAPENTIN
  8. ZOPICLON [Concomitant]
     Active Substance: ZOPICLONE
  9. BECLOMETASONE [Concomitant]
     Active Substance: BECLOMETHASONE DIPROPIONATE
  10. COLECALCIFEROL [Concomitant]
     Active Substance: CHOLECALCIFEROL
  11. ISOSORBIDE. [Concomitant]
     Active Substance: ISOSORBIDE
  12. RISPERIDONE. [Concomitant]
     Active Substance: RISPERIDONE
     Indication: AGITATION
  13. SALBUTAMOL [Concomitant]
     Active Substance: ALBUTEROL
  14. DIGOXIN. [Concomitant]
     Active Substance: DIGOXIN
  15. LORATADINE. [Concomitant]
     Active Substance: LORATADINE
  16. METFORMIN [Concomitant]
     Active Substance: METFORMIN HYDROCHLORIDE
  17. BISOPROLOL [Concomitant]
     Active Substance: BISOPROLOL
  18. FOLIC ACID. [Concomitant]
     Active Substance: FOLIC ACID

REACTIONS (5)
  - Paraesthesia [Unknown]
  - Death [Fatal]
  - Pruritus [Unknown]
  - Rash erythematous [Recovering/Resolving]
  - Formication [Unknown]

NARRATIVE: CASE EVENT DATE: 20170601
